FAERS Safety Report 24866930 (Version 2)
Quarter: 2025Q2

REPORT INFORMATION
  Report Type: Spontaneous
  Country: US (occurrence: US)
  Receive Date: 20250121
  Receipt Date: 20250504
  Transmission Date: 20250716
  Serious: Yes (Death, Other)
  Sender: SANOFI AVENTIS
  Company Number: US-SA-2025SA017616

PATIENT
  Age: 66 Year
  Sex: Female

DRUGS (18)
  1. REZUROCK [Suspect]
     Active Substance: BELUMOSUDIL
     Indication: Myelodysplastic syndrome
     Dosage: 200 MG, QD
     Route: 048
     Dates: start: 202408
  2. ALPRAZOLAM [Concomitant]
     Active Substance: ALPRAZOLAM
  3. ALPRAZOLAM [Concomitant]
     Active Substance: ALPRAZOLAM
  4. DEXAMETHASONE [Concomitant]
     Active Substance: DEXAMETHASONE
  5. DEXAMETHASONE [Concomitant]
     Active Substance: DEXAMETHASONE
  6. FUROSEMIDE [Concomitant]
     Active Substance: FUROSEMIDE
  7. FUROSEMIDE [Concomitant]
     Active Substance: FUROSEMIDE
  8. HYDROCORTISONE [Concomitant]
     Active Substance: HYDROCORTISONE
  9. LEVETIRACETAM [Concomitant]
     Active Substance: LEVETIRACETAM
  10. LIDOCAINE [Concomitant]
     Active Substance: LIDOCAINE
  11. OXYCODONE [Concomitant]
     Active Substance: OXYCODONE
  12. OXYCONTIN [Concomitant]
     Active Substance: OXYCODONE HYDROCHLORIDE
  13. TRIAMCINOLONE [Concomitant]
     Active Substance: TRIAMCINOLONE
  14. HERBALS\TURMERIC [Concomitant]
     Active Substance: HERBALS\TURMERIC
  15. VALACYCLOVIR [Concomitant]
     Active Substance: VALACYCLOVIR HYDROCHLORIDE
  16. DILAUDID [Concomitant]
     Active Substance: HYDROMORPHONE HYDROCHLORIDE
  17. SIROLIMUS [Concomitant]
     Active Substance: SIROLIMUS
  18. CYMBALTA [Concomitant]
     Active Substance: DULOXETINE HYDROCHLORIDE

REACTIONS (2)
  - Death [Fatal]
  - Product use in unapproved indication [Unknown]

NARRATIVE: CASE EVENT DATE: 20250101
